FAERS Safety Report 8311814 (Version 5)
Quarter: 2012Q4

REPORT INFORMATION
  Report Type: 
  Country: US (occurrence: US)
  Receive Date: 20111227
  Receipt Date: 20120831
  Transmission Date: 20130627
  Serious: Yes (Hospitalization, Other)
  Sender: FDA-Public Use
  Company Number: US-ELI_LILLY_AND_COMPANY-US201107001434

PATIENT
  Age: 65 Year
  Sex: Female
  Weight: 39 kg

DRUGS (23)
  1. FORTEO [Suspect]
     Indication: OSTEOPOROSIS
     Dosage: 20 ug, qd
     Route: 058
     Dates: start: 20110620
  2. FORTEO [Suspect]
     Dosage: 20 ug, qd
     Route: 058
  3. FORTEO [Suspect]
     Dosage: 20 ug, qd
     Route: 058
  4. FORTEO [Suspect]
     Dosage: 20 ug, qd
     Route: 058
  5. FORTEO [Suspect]
     Dosage: 20 ug, qd
     Route: 058
  6. FORTEO [Suspect]
     Dosage: 20 ug, qd
     Route: 058
  7. FORTEO [Suspect]
     Dosage: 20 ug, qd
     Route: 058
  8. FORTEO [Suspect]
     Dosage: 20 ug, qd
     Route: 058
  9. FORTEO [Suspect]
     Dosage: 20 ug, qd
     Route: 058
  10. FORTEO [Suspect]
     Dosage: 20 ug, qd
  11. FIORICET [Concomitant]
  12. NEURONTIN [Concomitant]
     Indication: HEADACHE
     Dosage: UNK, qd
  13. CALCIUM [Concomitant]
  14. DEPAKOTE [Concomitant]
  15. LORAZEPAM [Concomitant]
  16. MVI [Concomitant]
  17. PERCOCET [Concomitant]
     Dosage: UNK, prn
  18. SUMATRIPTAN [Concomitant]
  19. VITAMIN D3 [Concomitant]
  20. TYLENOL                                 /SCH/ [Concomitant]
     Dosage: UNK, qd
  21. CLONAZEPAM [Concomitant]
     Dosage: UNK, each evening
  22. CHLORAZEPAM [Concomitant]
  23. ZANTAC [Concomitant]

REACTIONS (32)
  - Intestinal obstruction [Recovered/Resolved]
  - Bile duct obstruction [Unknown]
  - Anaemia [Recovered/Resolved]
  - Pneumonia [Recovered/Resolved]
  - Overdose [Recovered/Resolved]
  - Nervous system disorder [Recovered/Resolved]
  - Bipolar disorder [Unknown]
  - Fatigue [Not Recovered/Not Resolved]
  - Limb injury [Unknown]
  - Malaise [Unknown]
  - Nasopharyngitis [Unknown]
  - Feeling abnormal [Unknown]
  - Contusion [Recovering/Resolving]
  - Hypokinesia [Unknown]
  - Poor quality sleep [Not Recovered/Not Resolved]
  - Abdominal discomfort [Unknown]
  - Cystitis [Unknown]
  - Paranoia [Unknown]
  - Asthenia [Unknown]
  - Headache [Not Recovered/Not Resolved]
  - Injection site bruising [Recovering/Resolving]
  - Constipation [Not Recovered/Not Resolved]
  - Diarrhoea [Recovering/Resolving]
  - Bladder pain [Unknown]
  - Drug dose omission [Unknown]
  - Urethral pain [Unknown]
  - Sneezing [Unknown]
  - Blood calcium increased [Unknown]
  - Malaise [Unknown]
  - Nasopharyngitis [Unknown]
  - Thyroid function test abnormal [Recovered/Resolved]
  - Weight increased [Unknown]
